FAERS Safety Report 13485364 (Version 1)
Quarter: 2017Q2

REPORT INFORMATION
  Report Type: Spontaneous
  Country: US (occurrence: US)
  Receive Date: 20170426
  Receipt Date: 20170426
  Transmission Date: 20170830
  Serious: No
  Sender: FDA-Public Use
  Company Number: None

PATIENT
  Age: 79 Year
  Sex: Male
  Weight: 86.18 kg

DRUGS (14)
  1. BACTRIM DS [Suspect]
     Active Substance: SULFAMETHOXAZOLE\TRIMETHOPRIM
     Indication: SKIN LESION
     Dosage: 800/160 MG
     Route: 048
     Dates: start: 20111220, end: 20111228
  2. BRILINTA [Concomitant]
     Active Substance: TICAGRELOR
  3. ASPRIN [Concomitant]
     Active Substance: ASPIRIN
  4. SEPTRA DS [Suspect]
     Active Substance: SULFAMETHOXAZOLE\TRIMETHOPRIM
     Indication: SKIN LESION
     Dosage: QUANTITY:1 TABLET EVERY 12 HRS?
     Route: 048
     Dates: start: 20111220, end: 20111228
  5. PRILOSEC [Concomitant]
     Active Substance: OMEPRAZOLE MAGNESIUM
  6. COZAAR [Concomitant]
     Active Substance: LOSARTAN POTASSIUM
  7. COREG [Concomitant]
     Active Substance: CARVEDILOL
  8. VITAMIN D3 [Concomitant]
     Active Substance: CHOLECALCIFEROL
  9. PROBIOTIC [Concomitant]
     Active Substance: PROBIOTICS NOS
  10. SYNTHROID [Concomitant]
     Active Substance: LEVOTHYROXINE SODIUM
  11. MAGNISIUM [Concomitant]
  12. NORVASC [Concomitant]
     Active Substance: AMLODIPINE BESYLATE
  13. COQ10 [Concomitant]
     Active Substance: UBIDECARENONE
  14. MELATONIN [Concomitant]
     Active Substance: MELATONIN

REACTIONS (1)
  - Rash pruritic [None]

NARRATIVE: CASE EVENT DATE: 20111228
